FAERS Safety Report 9148683 (Version 1)
Quarter: 2013Q1

REPORT INFORMATION
  Report Type: Spontaneous
  Country: US (occurrence: US)
  Receive Date: 20130308
  Receipt Date: 20130308
  Transmission Date: 20140127
  Serious: No
  Sender: FDA-Public Use
  Company Number: US-ENDO PHARMACEUTICALS INC.-OPCR20122034

PATIENT
  Age: 41 Year
  Sex: Male
  Weight: 77.63 kg

DRUGS (4)
  1. OPANA ER 20MG [Suspect]
     Indication: BACK PAIN
     Route: 048
     Dates: start: 20121109, end: 20121110
  2. OPANA ER 20MG [Suspect]
     Indication: PAIN IN EXTREMITY
  3. ENDOCET 5MG/325MG [Concomitant]
     Indication: BACK PAIN
     Dosage: 30/1950 MG
     Route: 048
     Dates: start: 2012, end: 2012
  4. ENDOCET 5MG/325MG [Concomitant]
     Indication: PAIN IN EXTREMITY

REACTIONS (4)
  - Muscle spasms [Recovered/Resolved]
  - Joint stiffness [Recovered/Resolved]
  - Tremor [Recovered/Resolved]
  - Asthenia [Recovered/Resolved]
